FAERS Safety Report 8949148 (Version 1)
Quarter: 2012Q4

REPORT INFORMATION
  Report Type: 
  Country: US (occurrence: US)
  Receive Date: 20121206
  Receipt Date: 20121206
  Transmission Date: 20130627
  Serious: Yes (Disabling)
  Sender: FDA-Public Use
  Company Number: US-SHIRE-ALL1-2012-05401

PATIENT
  Age: 6 Year
  Sex: Male
  Weight: 18.82 kg

DRUGS (3)
  1. INTUNIV [Suspect]
     Indication: ATTENTION DEFICIT/HYPERACTIVITY DISORDER
     Dosage: 1 mg, 1x/day:qd (at sleep)
     Route: 048
     Dates: start: 20121018, end: 20121019
  2. MIRALAX                            /00754501/ [Concomitant]
     Indication: CONSTIPATION
     Dosage: 1 DF (one cap full), Other (Every other day)
     Route: 048
     Dates: start: 20100429
  3. FLONASE [Concomitant]
     Indication: SEASONAL ALLERGY
     Dosage: 1 DF (1 spray), 2x/day:bid
     Route: 045
     Dates: start: 20120921

REACTIONS (7)
  - Catatonia [Recovered/Resolved]
  - Decreased appetite [Recovered/Resolved]
  - Vomiting [Recovered/Resolved]
  - Disturbance in social behaviour [Recovered/Resolved]
  - Wrong technique in drug usage process [Recovered/Resolved]
  - Incorrect dose administered [Recovered/Resolved]
  - Drug dose omission [Recovered/Resolved]
